FAERS Safety Report 18780049 (Version 3)
Quarter: 2025Q3

REPORT INFORMATION
  Report Type: Spontaneous
  Country: CA (occurrence: CA)
  Receive Date: 20210125
  Receipt Date: 20250729
  Transmission Date: 20251021
  Serious: Yes (Other)
  Sender: ROCHE
  Company Number: CA-002147023-NVSC2021CA014064

PATIENT
  Age: 23 Year
  Sex: Female

DRUGS (1)
  1. XOLAIR [Suspect]
     Active Substance: OMALIZUMAB
     Indication: Asthma
     Route: 058
     Dates: start: 20210119, end: 20210119

REACTIONS (12)
  - Anaphylactic reaction [Unknown]
  - Upper airway obstruction [Recovering/Resolving]
  - Chest discomfort [Recovering/Resolving]
  - Hypotension [Recovering/Resolving]
  - Gastrointestinal pain [Recovering/Resolving]
  - Migraine [Recovering/Resolving]
  - Erythema [Recovering/Resolving]
  - Flushing [Recovering/Resolving]
  - Dyspnoea [Recovering/Resolving]
  - Mouth swelling [Recovering/Resolving]
  - Swollen tongue [Recovering/Resolving]
  - Oropharyngeal swelling [Recovering/Resolving]
